FAERS Safety Report 10741402 (Version 1)
Quarter: 2015Q1

REPORT INFORMATION
  Report Type: Spontaneous
  Country: US (occurrence: None)
  Receive Date: 20150123
  Receipt Date: 20150123
  Transmission Date: 20150721
  Serious: Yes (Other)
  Sender: FDA-Public Use
  Company Number: None

PATIENT
  Age: 67 Year
  Sex: Male

DRUGS (12)
  1. AMBIEN [Concomitant]
     Active Substance: ZOLPIDEM TARTRATE
  2. BACLOFEN. [Concomitant]
     Active Substance: BACLOFEN
  3. VICODIN [Concomitant]
     Active Substance: ACETAMINOPHEN\HYDROCODONE BITARTRATE
  4. DILAUDID [Concomitant]
     Active Substance: HYDROMORPHONE HYDROCHLORIDE
  5. COREG [Concomitant]
     Active Substance: CARVEDILOL
  6. MOTRIN [Concomitant]
     Active Substance: IBUPROFEN
  7. VITAMIN D [Concomitant]
     Active Substance: CHOLECALCIFEROL
  8. FLOMAX [Concomitant]
     Active Substance: TAMSULOSIN HYDROCHLORIDE
  9. PRILOSEC [Concomitant]
     Active Substance: OMEPRAZOLE MAGNESIUM
  10. AMPYRA [Suspect]
     Active Substance: DALFAMPRIDINE
     Indication: PLASMA CELL MYELOMA
     Dosage: THICK LINE BLOCKING FREQUENCY?ID?10MG?ORAL ?THICK LINE BLOCKING DISEASE?MULTIPLE MY?LOMA?THICK LINE BLOCKING EXPIRATION DATE??/30/2017
     Route: 048
     Dates: start: 201006
  11. AMODAFINIL [Concomitant]
  12. XANAX [Concomitant]
     Active Substance: ALPRAZOLAM

REACTIONS (2)
  - Urinary tract infection [None]
  - Malaise [None]

NARRATIVE: CASE EVENT DATE: 20141216
